FAERS Safety Report 7469066-9 (Version None)
Quarter: 2011Q2

REPORT INFORMATION
  Report Type: 
  Country: None (occurrence: None)
  Receive Date: 20110429
  Receipt Date: 20110426
  Transmission Date: 20111010
  Serious: Yes (Death, Hospitalization)
  Sender: FDA-Public Use
  Company Number: 2010SP039974

PATIENT
  Age: 16 Year
  Sex: Female
  Weight: 48 kg

DRUGS (10)
  1. TEMODAL [Suspect]
     Indication: ANAPLASTIC ASTROCYTOMA
     Dosage: 75 MG/M2;QD;PO; 150 MG/M2; QD;PO
     Route: 048
     Dates: start: 20070801, end: 20070805
  2. TEMODAL [Suspect]
     Indication: ANAPLASTIC ASTROCYTOMA
     Dosage: 75 MG/M2;QD;PO; 150 MG/M2; QD;PO
     Route: 048
     Dates: start: 20070829, end: 20070902
  3. TEMODAL [Suspect]
     Indication: ANAPLASTIC ASTROCYTOMA
     Dosage: 75 MG/M2;QD;PO; 150 MG/M2; QD;PO
     Route: 048
     Dates: start: 20071107, end: 20071111
  4. TEMODAL [Suspect]
     Indication: ANAPLASTIC ASTROCYTOMA
     Dosage: 75 MG/M2;QD;PO; 150 MG/M2; QD;PO
     Route: 048
     Dates: start: 20070522, end: 20070702
  5. TEMODAL [Suspect]
     Indication: ANAPLASTIC ASTROCYTOMA
     Dosage: 75 MG/M2;QD;PO; 150 MG/M2; QD;PO
     Route: 048
     Dates: start: 20071205, end: 20071209
  6. TEMODAL [Suspect]
     Indication: ANAPLASTIC ASTROCYTOMA
     Dosage: 75 MG/M2;QD;PO; 150 MG/M2; QD;PO
     Route: 048
     Dates: start: 20080509, end: 20080513
  7. TEMODAL [Suspect]
     Indication: ANAPLASTIC ASTROCYTOMA
     Dosage: 75 MG/M2;QD;PO; 150 MG/M2; QD;PO
     Route: 048
     Dates: start: 20070926, end: 20070930
  8. MAGNESIUM OXIDE [Concomitant]
  9. ZANTAC [Concomitant]
  10. COTRIM [Concomitant]

REACTIONS (5)
  - C-REACTIVE PROTEIN INCREASED [None]
  - ANAPLASTIC ASTROCYTOMA [None]
  - NEOPLASM MALIGNANT [None]
  - BLOOD ALBUMIN DECREASED [None]
  - LYMPHOCYTE COUNT DECREASED [None]
